FAERS Safety Report 9485401 (Version 1)
Quarter: 2013Q3

REPORT INFORMATION
  Report Type: Spontaneous
  Country: FI (occurrence: FI)
  Receive Date: 20130829
  Receipt Date: 20130829
  Transmission Date: 20140515
  Serious: Yes (Hospitalization)
  Sender: FDA-Public Use
  Company Number: FI-AMGEN-FINSP2013059667

PATIENT
  Age: 35 Year
  Sex: Male

DRUGS (14)
  1. ARANESP [Suspect]
     Indication: PRODUCT USED FOR UNKNOWN INDICATION
     Dosage: 300 MUG, UNK
     Route: 065
  2. CEFTRIAXONE [Concomitant]
  3. FLUCONAZOL [Concomitant]
  4. PIPERACILLIN [Concomitant]
  5. VANCOMYCIN [Concomitant]
  6. PRIMPERAN [Concomitant]
  7. SOMAC [Concomitant]
  8. INNOHEP [Concomitant]
  9. MYCAMINE [Concomitant]
  10. FURESIS [Concomitant]
  11. SERENASE                           /00027401/ [Concomitant]
  12. OXANEST [Concomitant]
  13. MIRTAZAPINE [Concomitant]
  14. PARACETAMOL [Concomitant]

REACTIONS (2)
  - Alcoholic pancreatitis [Unknown]
  - Convulsion [Unknown]
